FAERS Safety Report 5188271-8 (Version None)
Quarter: 2006Q4

REPORT INFORMATION
  Report Type: 
  Country: None (occurrence: None)
  Receive Date: 20061221
  Receipt Date: 20061211
  Transmission Date: 20070319
  Serious: Yes (Hospitalization)
  Sender: FDA-Public Use
  Company Number: JP-GLAXOSMITHKLINE-B0450292A

PATIENT
  Age: 34 Year
  Sex: Male
  Weight: 85 kg

DRUGS (6)
  1. PAXIL [Suspect]
     Indication: DRUG USE FOR UNKNOWN INDICATION
     Route: 048
  2. DIAZEPAM [Suspect]
     Indication: DRUG USE FOR UNKNOWN INDICATION
     Route: 065
  3. VEGETAMIN [Suspect]
     Indication: DRUG USE FOR UNKNOWN INDICATION
     Route: 048
  4. LEVOTOMIN [Suspect]
     Indication: DRUG USE FOR UNKNOWN INDICATION
     Route: 065
  5. NITRAZEPAM [Suspect]
     Indication: DRUG USE FOR UNKNOWN INDICATION
     Route: 048
  6. ROHYPNOL [Suspect]
     Indication: DRUG USE FOR UNKNOWN INDICATION

REACTIONS (7)
  - ASPIRATION [None]
  - BACTERAEMIA [None]
  - DRUG TOXICITY [None]
  - INTENTIONAL OVERDOSE [None]
  - PYREXIA [None]
  - SUICIDE ATTEMPT [None]
  - URINARY TRACT INFECTION [None]
